FAERS Safety Report 13501348 (Version 2)
Quarter: 2017Q4

REPORT INFORMATION
  Report Type: Spontaneous
  Country: US (occurrence: US)
  Receive Date: 20170501
  Receipt Date: 20171027
  Transmission Date: 20180320
  Serious: No
  Sender: FDA-Public Use
  Company Number: US-ROCHE-1887706

PATIENT
  Sex: Female

DRUGS (1)
  1. ESBRIET [Suspect]
     Active Substance: PIRFENIDONE
     Indication: PRODUCT USED FOR UNKNOWN INDICATION
     Dosage: 3 CAPSULES THRICE A DAY WITH MEALS
     Route: 065

REACTIONS (5)
  - Rhinorrhoea [Unknown]
  - Diarrhoea [Unknown]
  - Weight increased [Unknown]
  - Sneezing [Unknown]
  - Abdominal tenderness [Unknown]
